FAERS Safety Report 6807753-3 (Version None)
Quarter: 2010Q2

REPORT INFORMATION
  Report Type: 
  Country: None (occurrence: None)
  Receive Date: 20100628
  Receipt Date: 20100628
  Transmission Date: 20101027
  Serious: Yes (Other)
  Sender: FDA-Public Use
  Company Number: None

PATIENT
  Age: 37 Year
  Sex: Female
  Weight: 122.4712 kg

DRUGS (2)
  1. WARFARIN SODIUM [Suspect]
     Indication: DEEP VEIN THROMBOSIS
     Dosage: 2 1/2 MG M+F PO
     Route: 048
     Dates: start: 19990101
  2. WARFARIN SODIUM [Suspect]
     Indication: DEEP VEIN THROMBOSIS
     Dosage: 5 MG QD PO
     Route: 048
     Dates: start: 19990101

REACTIONS (3)
  - INTERNATIONAL NORMALISED RATIO ABNORMAL [None]
  - PRODUCT SUBSTITUTION ISSUE [None]
  - PROTHROMBIN TIME ABNORMAL [None]
